FAERS Safety Report 17270752 (Version 1)
Quarter: 2020Q1

REPORT INFORMATION
  Report Type: Report from Study
  Country: US (occurrence: US)
  Receive Date: 20200114
  Receipt Date: 20200114
  Transmission Date: 20200409
  Serious: Yes (Hospitalization)
  Sender: FDA-Public Use
  Company Number: US-BAXTER-2020BAX000371

PATIENT
  Age: 4 Year
  Sex: Male
  Weight: 15.7 kg

DRUGS (59)
  1. DOXIL [Suspect]
     Active Substance: DOXORUBICIN HYDROCHLORIDE
     Route: 042
     Dates: start: 20190913, end: 20190913
  2. CYCLOPHOSPHAMIDE FOR INJECTION, USP [Suspect]
     Active Substance: CYCLOPHOSPHAMIDE
     Route: 042
     Dates: start: 20190528, end: 20190528
  3. CYCLOPHOSPHAMIDE FOR INJECTION, USP [Suspect]
     Active Substance: CYCLOPHOSPHAMIDE
     Dosage: DOSE WAS INCREASED TO 710 MG
     Route: 042
     Dates: start: 20191014
  4. CYTARABINE. [Suspect]
     Active Substance: CYTARABINE
     Route: 042
     Dates: start: 20190507, end: 20190510
  5. VINCRISTINE [Suspect]
     Active Substance: VINCRISTINE
     Indication: ACUTE LYMPHOCYTIC LEUKAEMIA
     Dosage: EACH DOSE FOR 4 DOSES, 1 MONTH 5 DAYS, FIRST DOSE
     Route: 042
     Dates: start: 20190514, end: 20190618
  6. METHOTREXATE. [Suspect]
     Active Substance: METHOTREXATE
     Route: 042
     Dates: start: 20190802, end: 20190802
  7. METHOTREXATE. [Suspect]
     Active Substance: METHOTREXATE
     Dosage: LAST DOSE PRIOR TO SAES
     Route: 037
     Dates: start: 20191021, end: 20191021
  8. PEGASPARGASE [Suspect]
     Active Substance: PEGASPARGASE
     Route: 042
     Dates: start: 20191028
  9. DOXIL [Suspect]
     Active Substance: DOXORUBICIN HYDROCHLORIDE
     Indication: ACUTE LYMPHOCYTIC LEUKAEMIA
     Dosage: FIRST DOSE
     Route: 042
     Dates: start: 20190906, end: 20190906
  10. THIOGUANINE [Suspect]
     Active Substance: THIOGUANINE
     Indication: ACUTE LYMPHOCYTIC LEUKAEMIA
     Dosage: TABLET, FIRST DOSE
     Route: 048
     Dates: start: 20191014
  11. VINCRISTINE [Suspect]
     Active Substance: VINCRISTINE
     Dosage: 2 MONTHS 16 DAYS, DOSE WAS INCREASED TO 1 MG
     Route: 042
     Dates: start: 20190705, end: 20190920
  12. METHOTREXATE. [Suspect]
     Active Substance: METHOTREXATE
     Route: 037
     Dates: start: 20190705, end: 20190705
  13. METHOTREXATE. [Suspect]
     Active Substance: METHOTREXATE
     Route: 037
     Dates: start: 20190906, end: 20190906
  14. METHOTREXATE. [Suspect]
     Active Substance: METHOTREXATE
     Route: 042
     Dates: start: 20190719, end: 20190719
  15. CYCLOPHOSPHAMIDE FOR INJECTION, USP [Suspect]
     Active Substance: CYCLOPHOSPHAMIDE
     Dosage: LAST DOSE PRIOR TO SAES
     Route: 042
     Dates: start: 20191014, end: 20191014
  16. INCB018424 [Suspect]
     Active Substance: RUXOLITINIB
     Dosage: TABLET
     Route: 048
     Dates: start: 20191014
  17. INCB018424 [Suspect]
     Active Substance: RUXOLITINIB
     Dosage: LAST DOSE PRIOR TO SAES
     Route: 048
     Dates: start: 20191027, end: 20191027
  18. THIOGUANINE [Suspect]
     Active Substance: THIOGUANINE
     Dosage: TABLET. LAST DOSE PRIOR TO SAES
     Route: 048
     Dates: start: 20191027, end: 20191027
  19. VINCRISTINE [Suspect]
     Active Substance: VINCRISTINE
     Route: 042
     Dates: start: 20191028
  20. METHOTREXATE. [Suspect]
     Active Substance: METHOTREXATE
     Indication: ACUTE LYMPHOCYTIC LEUKAEMIA
     Dosage: FIRST DOSE
     Route: 037
     Dates: start: 20190429, end: 20190429
  21. METHOTREXATE. [Suspect]
     Active Substance: METHOTREXATE
     Route: 037
     Dates: start: 20190507, end: 20190507
  22. METHOTREXATE. [Suspect]
     Active Substance: METHOTREXATE
     Route: 037
     Dates: start: 20190802, end: 20190802
  23. METHOTREXATE. [Suspect]
     Active Substance: METHOTREXATE
     Dosage: LAST DOSE PRIOR TO SAES
     Route: 042
     Dates: start: 20190816, end: 20190816
  24. DOXIL [Suspect]
     Active Substance: DOXORUBICIN HYDROCHLORIDE
     Dosage: LAST DOSE PRIOR TO SAES
     Route: 042
     Dates: start: 20190920, end: 20190920
  25. DOXIL [Suspect]
     Active Substance: DOXORUBICIN HYDROCHLORIDE
     Route: 042
     Dates: start: 20190920
  26. INCB018424 [Suspect]
     Active Substance: RUXOLITINIB
     Dosage: TABLET, 1 MONTH 11 DAYS, INTERIM MAINTENANCE: 14 DAYS ON 14 DAYS OFF
     Route: 048
     Dates: start: 20190705, end: 20190815
  27. CYTARABINE. [Suspect]
     Active Substance: CYTARABINE
     Route: 042
     Dates: start: 20190528, end: 20190531
  28. CYTARABINE. [Suspect]
     Active Substance: CYTARABINE
     Dosage: DOSE WAS INCREASED TO 53 MG
     Route: 042
     Dates: start: 20191014, end: 20191017
  29. CYTARABINE. [Suspect]
     Active Substance: CYTARABINE
     Route: 042
     Dates: start: 20191021
  30. METHOTREXATE. [Suspect]
     Active Substance: METHOTREXATE
     Route: 037
     Dates: start: 20190514, end: 20190514
  31. DECADRON [Suspect]
     Active Substance: DEXAMETHASONE
     Indication: ACUTE LYMPHOCYTIC LEUKAEMIA
     Dosage: TABLET, 3.5 MILLIGRAM X 7 DAYS, FIRST DOSE
     Route: 048
     Dates: start: 20190906, end: 20190912
  32. MERCAPTOPURINE. [Suspect]
     Active Substance: MERCAPTOPURINE
     Indication: ACUTE LYMPHOCYTIC LEUKAEMIA
     Dosage: TABLET, FIRST DOSE
     Route: 048
     Dates: start: 20190430, end: 20190513
  33. MERCAPTOPURINE. [Suspect]
     Active Substance: MERCAPTOPURINE
     Dosage: LAST DOSE PRIOR TO SAES
     Route: 048
     Dates: start: 20190829, end: 20190829
  34. NORVASC [Concomitant]
     Active Substance: AMLODIPINE BESYLATE
     Indication: PRODUCT USED FOR UNKNOWN INDICATION
     Route: 065
     Dates: start: 20190417
  35. INCB018424 [Suspect]
     Active Substance: RUXOLITINIB
     Dosage: TABLET, DELAYED INTENSIFICATION: 14 DAYS ON 14 DAYS OFF
     Route: 048
     Dates: start: 20190906, end: 20190919
  36. VINCRISTINE [Suspect]
     Active Substance: VINCRISTINE
     Dosage: LAST DOSE PRIOR TO SAES PERTUSSIS, FEVER AND STREP A
     Route: 042
     Dates: start: 20191104, end: 20191104
  37. METHOTREXATE. [Suspect]
     Active Substance: METHOTREXATE
     Route: 037
     Dates: start: 20191021
  38. METHOTREXATE. [Suspect]
     Active Substance: METHOTREXATE
     Dosage: FIRST DOSE
     Route: 042
     Dates: start: 20190705, end: 20190705
  39. METHOTREXATE. [Suspect]
     Active Substance: METHOTREXATE
     Route: 042
     Dates: start: 20190816
  40. PEGASPARGASE [Suspect]
     Active Substance: PEGASPARGASE
     Indication: ACUTE LYMPHOCYTIC LEUKAEMIA
     Dosage: FIRST DOSE
     Route: 042
     Dates: start: 20190514, end: 20190514
  41. MERCAPTOPURINE. [Suspect]
     Active Substance: MERCAPTOPURINE
     Dosage: TABLET, DOSE WAS DECREASED TO 16 MG
     Route: 048
     Dates: start: 20190705
  42. CYTARABINE. [Suspect]
     Active Substance: CYTARABINE
     Indication: ACUTE LYMPHOCYTIC LEUKAEMIA
     Dosage: FIRST DOSE
     Route: 042
     Dates: start: 20190430, end: 20190503
  43. CYTARABINE. [Suspect]
     Active Substance: CYTARABINE
     Route: 042
     Dates: start: 20190604, end: 20190606
  44. VINCRISTINE [Suspect]
     Active Substance: VINCRISTINE
     Route: 042
     Dates: start: 20191028, end: 20191028
  45. VINCRISTINE [Suspect]
     Active Substance: VINCRISTINE
     Dosage: LAST DOSE PRIOR TO SAE CYTOPENIAS
     Route: 065
     Dates: start: 20191027, end: 20191027
  46. PEGASPARGASE [Suspect]
     Active Substance: PEGASPARGASE
     Route: 042
     Dates: start: 20190611, end: 20190611
  47. PEGASPARGASE [Suspect]
     Active Substance: PEGASPARGASE
     Dosage: DOSE WAS INCREASED TO 1675 IU
     Route: 042
     Dates: start: 20190909, end: 20190909
  48. DECADRON [Suspect]
     Active Substance: DEXAMETHASONE
     Dosage: TABLET . LAST DOSE PRIOR TO SAES
     Route: 048
     Dates: start: 20190926, end: 20190926
  49. MERCAPTOPURINE. [Suspect]
     Active Substance: MERCAPTOPURINE
     Dosage: TABLET
     Route: 048
     Dates: start: 20190528, end: 20190610
  50. MELATONIN [Concomitant]
     Active Substance: MELATONIN
     Indication: PRODUCT USED FOR UNKNOWN INDICATION
     Route: 065
     Dates: start: 20190924
  51. CYTARABINE. [Suspect]
     Active Substance: CYTARABINE
     Dosage: LAST DOSE PRIOR TO SAES
     Route: 042
     Dates: start: 20191024, end: 20191024
  52. METHOTREXATE. [Suspect]
     Active Substance: METHOTREXATE
     Route: 037
     Dates: start: 20190521, end: 20190521
  53. METHOTREXATE. [Suspect]
     Active Substance: METHOTREXATE
     Route: 037
     Dates: start: 20191014, end: 20191014
  54. PEGASPARGASE [Suspect]
     Active Substance: PEGASPARGASE
     Dosage: LAST DOSE PRIOR TO SAES PERTUSSIS, FEVER AND STREP A
     Route: 042
     Dates: start: 20191028, end: 20191028
  55. DECADRON [Suspect]
     Active Substance: DEXAMETHASONE
     Dosage: TABLET, 3.5 MILLIGRAM X 7 DAYS
     Route: 048
     Dates: start: 20190920
  56. CYCLOPHOSPHAMIDE FOR INJECTION, USP [Suspect]
     Active Substance: CYCLOPHOSPHAMIDE
     Indication: ACUTE LYMPHOCYTIC LEUKAEMIA
     Dosage: FIRST DOSE
     Route: 042
     Dates: start: 20190430, end: 20190430
  57. INCB018424 [Suspect]
     Active Substance: RUXOLITINIB
     Indication: ACUTE LYMPHOCYTIC LEUKAEMIA
     Dosage: TABLET, 1 MONTH 12 DAYS, CONSOLIDATION: 14 DAYS ON 14 DAYS OFF, FIRST DOSE
     Route: 048
     Dates: start: 20190430, end: 20190610
  58. PEGASPARGASE [Suspect]
     Active Substance: PEGASPARGASE
     Dosage: LAST DOSE PRIOR TO SAE CYTOPENIAS
     Route: 065
     Dates: start: 20191027, end: 20191027
  59. TENEX [Concomitant]
     Active Substance: GUANFACINE HYDROCHLORIDE
     Indication: PRODUCT USED FOR UNKNOWN INDICATION
     Route: 065
     Dates: start: 20190618

REACTIONS (7)
  - Pyrexia [Recovered/Resolved]
  - Streptococcal infection [Recovered/Resolved]
  - Pertussis [Recovered/Resolved]
  - Platelet count decreased [Recovering/Resolving]
  - Pancytopenia [Recovered/Resolved]
  - Neutropenia [Recovering/Resolving]
  - Anaemia [Recovering/Resolving]

NARRATIVE: CASE EVENT DATE: 20191027
